FAERS Safety Report 5189299-4 (Version None)
Quarter: 2006Q4

REPORT INFORMATION
  Report Type: 
  Country: None (occurrence: None)
  Receive Date: 20061221
  Receipt Date: 20061007
  Transmission Date: 20070319
  Serious: No
  Sender: FDA-Public Use
  Company Number: US-AMGEN-US196302

PATIENT
  Sex: Female

DRUGS (2)
  1. ENBREL [Suspect]
     Indication: RHEUMATOID ARTHRITIS
     Route: 058
     Dates: start: 20060708
  2. PLAQUENIL [Concomitant]
     Route: 065
     Dates: start: 20060921

REACTIONS (7)
  - DRY MOUTH [None]
  - DRY SKIN [None]
  - HAIR TEXTURE ABNORMAL [None]
  - HEADACHE [None]
  - INJECTION SITE REACTION [None]
  - LIP DRY [None]
  - WEIGHT INCREASED [None]
